FAERS Safety Report 14896301 (Version 1)
Quarter: 2018Q2

REPORT INFORMATION
  Report Type: Spontaneous
  Country: DE (occurrence: DE)
  Receive Date: 20180515
  Receipt Date: 20180515
  Transmission Date: 20180711
  Serious: Yes (Death, Hospitalization)
  Sender: FDA-Public Use
  Company Number: DE-WEST-WARD PHARMACEUTICALS CORP.-DE-H14001-18-03895

PATIENT
  Age: 67 Year
  Sex: Female
  Weight: 65 kg

DRUGS (20)
  1. CARBOPLATIN. [Suspect]
     Active Substance: CARBOPLATIN
     Dosage: DOSE: 5 AUC
     Route: 042
     Dates: start: 20140520, end: 20140520
  2. CARBOPLATIN. [Suspect]
     Active Substance: CARBOPLATIN
     Dosage: DOSE: 5 AUC
     Route: 042
     Dates: start: 20140423, end: 20140423
  3. PACLITAXEL. [Suspect]
     Active Substance: PACLITAXEL
     Indication: OVARIAN CANCER
     Dosage: 300 MG
     Route: 042
     Dates: start: 20140401, end: 20140401
  4. BEVACIZUMAB. [Suspect]
     Active Substance: BEVACIZUMAB
     Indication: OVARIAN CANCER
     Dosage: 950 MG
     Route: 042
     Dates: start: 20140617, end: 20140617
  5. PANTOPRAZOL [Concomitant]
     Active Substance: PANTOPRAZOLE SODIUM
     Indication: DYSPEPSIA
     Route: 048
  6. CARBOPLATIN. [Suspect]
     Active Substance: CARBOPLATIN
     Dosage: DOSE: 5 AUC
     Route: 042
     Dates: start: 20140710, end: 20140710
  7. PACLITAXEL. [Suspect]
     Active Substance: PACLITAXEL
     Dosage: 222 MG
     Route: 042
     Dates: start: 20140306, end: 20140306
  8. AMLODIPIN [Concomitant]
     Active Substance: AMLODIPINE BESYLATE
     Indication: HYPERTENSION
     Route: 048
  9. L-THYROXIN [Concomitant]
     Active Substance: LEVOTHYROXINE SODIUM
     Indication: HYPERTHYROIDISM
     Route: 048
  10. PACLITAXEL. [Suspect]
     Active Substance: PACLITAXEL
     Dosage: 282 MG
     Route: 042
     Dates: start: 20140423, end: 20140423
  11. SERTRALINE [Concomitant]
     Active Substance: SERTRALINE HYDROCHLORIDE
     Indication: DEPRESSION
     Route: 048
  12. CARBOPLATIN. [Suspect]
     Active Substance: CARBOPLATIN
     Dosage: DOSE: 5 AUC
     Route: 042
     Dates: start: 20140306, end: 20140306
  13. BEVACIZUMAB. [Suspect]
     Active Substance: BEVACIZUMAB
     Route: 042
  14. BEVACIZUMAB. [Suspect]
     Active Substance: BEVACIZUMAB
     Dosage: 962 MG
     Route: 042
     Dates: start: 20140306, end: 20140306
  15. PACLITAXEL. [Suspect]
     Active Substance: PACLITAXEL
     Dosage: 297 MG
     Route: 042
     Dates: start: 20140520, end: 20140520
  16. PACLITAXEL. [Suspect]
     Active Substance: PACLITAXEL
     Dosage: 288 MG
     Route: 042
     Dates: start: 20140617, end: 20140617
  17. SPASMEX (GERMANY) [Concomitant]
     Indication: URGE INCONTINENCE
     Route: 048
  18. CARBOPLATIN. [Suspect]
     Active Substance: CARBOPLATIN
     Indication: OVARIAN CANCER
     Dosage: DOSE: 5 AUC
     Route: 042
     Dates: start: 20140401, end: 20140401
  19. PACLITAXEL. [Suspect]
     Active Substance: PACLITAXEL
     Dosage: 290 MG
     Route: 042
     Dates: start: 20140710, end: 20140710
  20. CARBOPLATIN. [Suspect]
     Active Substance: CARBOPLATIN
     Dosage: DOSE: 5 AUC
     Route: 042
     Dates: start: 20140617, end: 20140617

REACTIONS (5)
  - Gastrointestinal infection [Recovered/Resolved]
  - Diarrhoea [Recovered/Resolved]
  - Vomiting [Unknown]
  - Multiple organ dysfunction syndrome [Fatal]
  - Ileus [Fatal]

NARRATIVE: CASE EVENT DATE: 20140617
